FAERS Safety Report 4943307-1 (Version None)
Quarter: 2006Q1

REPORT INFORMATION
  Report Type: 
  Country: None (occurrence: None)
  Receive Date: 20060314
  Receipt Date: 20060307
  Transmission Date: 20060701
  Serious: Yes (Hospitalization)
  Sender: FDA-Public Use
  Company Number: BE-ROCHE-439086

PATIENT
  Age: 31 Year
  Sex: Female

DRUGS (4)
  1. VALIUM [Suspect]
     Route: 048
     Dates: end: 20060301
  2. VALIUM [Suspect]
     Dosage: START AND STOP DATES REPORTED AS 'MARCH 2006'.
     Route: 048
     Dates: start: 20060301, end: 20060301
  3. ZYPREXA [Suspect]
     Dosage: DETAILS OF DOSAGE NOT PROVIDED.
     Route: 048
     Dates: end: 20060301
  4. ZYPREXA [Suspect]
     Dosage: DETAILS OF DOSAGE NOT PROVIDED.
     Route: 048
     Dates: start: 20060301, end: 20060301

REACTIONS (5)
  - COMA [None]
  - DRUG EXPOSURE DURING PREGNANCY [None]
  - MULTIPLE DRUG OVERDOSE INTENTIONAL [None]
  - PREGNANCY [None]
  - SUICIDE ATTEMPT [None]
